FAERS Safety Report 22234631 (Version 1)
Quarter: 2023Q2

REPORT INFORMATION
  Report Type: Spontaneous
  Country: NZ (occurrence: NZ)
  Receive Date: 20230420
  Receipt Date: 20230420
  Transmission Date: 20230721
  Serious: Yes (Death, Other)
  Sender: FDA-Public Use
  Company Number: NZ-PFIZER INC-PV202300068313

PATIENT
  Age: 79 Year
  Sex: Male

DRUGS (2)
  1. HALCION [Suspect]
     Active Substance: TRIAZOLAM
     Dosage: 11 TABLETS
  2. ASPIRIN [Suspect]
     Active Substance: ASPIRIN
     Dosage: 30 TABLETS

REACTIONS (3)
  - Completed suicide [Fatal]
  - Intentional overdose [Unknown]
  - Somnolence [Unknown]
